FAERS Safety Report 6536686-5 (Version None)
Quarter: 2010Q1

REPORT INFORMATION
  Report Type: 
  Country: None (occurrence: None)
  Receive Date: 20100113
  Receipt Date: 20100104
  Transmission Date: 20100710
  Serious: Yes (Death)
  Sender: FDA-Public Use
  Company Number: US-PFIZER INC-2010001186

PATIENT
  Age: 47 Year
  Sex: Male

DRUGS (8)
  1. DOXEPIN HCL [Suspect]
     Route: 048
  2. ATENOLOL [Suspect]
     Route: 048
  3. BUSPIRONE [Suspect]
     Route: 048
  4. CITALOPRAM [Suspect]
     Route: 048
  5. FLUOXETINE [Suspect]
     Route: 048
  6. NORTRIPTYLINE [Suspect]
     Route: 048
  7. PHENOBARBITAL [Suspect]
     Route: 048
  8. DIGOXIN [Suspect]
     Route: 048

REACTIONS (1)
  - COMPLETED SUICIDE [None]
